FAERS Safety Report 5127576-3 (Version None)
Quarter: 2006Q4

REPORT INFORMATION
  Report Type: 
  Country: None (occurrence: None)
  Receive Date: 20061011
  Receipt Date: 20060925
  Transmission Date: 20070319
  Serious: Yes (Hospitalization)
  Sender: FDA-Public Use
  Company Number: 2006ADE/DICLO-020

PATIENT
  Age: 84 Year
  Sex: Female

DRUGS (1)
  1. DICLOFENAC [Suspect]
     Dosage: ORAL
     Route: 048
     Dates: start: 20060721, end: 20060801

REACTIONS (4)
  - BLISTER [None]
  - ERYSIPELAS [None]
  - RASH PAPULAR [None]
  - SKIN REACTION [None]
